FAERS Safety Report 26042429 (Version 1)
Quarter: 2025Q4

REPORT INFORMATION
  Report Type: Spontaneous
  Country: US (occurrence: US)
  Receive Date: 20251113
  Receipt Date: 20251113
  Transmission Date: 20260118
  Serious: No
  Sender: Haleon PLC
  Company Number: US-HALEON-2273760

PATIENT

DRUGS (2)
  1. NICOTINE POLACRILEX [Suspect]
     Active Substance: NICOTINE
     Indication: Ex-tobacco user
  2. NICOTINE POLACRILEX [Suspect]
     Active Substance: NICOTINE

REACTIONS (3)
  - Oral mucosal discolouration [Unknown]
  - Incorrect dose administered [Unknown]
  - Product solubility abnormal [Unknown]
